FAERS Safety Report 20720630 (Version 1)
Quarter: 2022Q2

REPORT INFORMATION
  Report Type: Report from Study
  Country: GB (occurrence: GB)
  Receive Date: 20220418
  Receipt Date: 20220418
  Transmission Date: 20220720
  Serious: Yes (Hospitalization)
  Sender: FDA-Public Use
  Company Number: GB-BAXTER-2022BAX006626

PATIENT
  Age: 5 Year
  Sex: Male
  Weight: 15.4 kg

DRUGS (27)
  1. TOPOTECAN HYDROCHLORIDE [Suspect]
     Active Substance: TOPOTECAN HYDROCHLORIDE
     Indication: Refractory cancer
     Dosage: UP TO 5 DAYS IN EACH 21 DAY CYCLE
     Route: 042
     Dates: start: 20220121
  2. CYCLOPHOSPHAMIDE [Suspect]
     Active Substance: CYCLOPHOSPHAMIDE
     Indication: Neuroblastoma
     Dosage: UNK
     Route: 042
     Dates: start: 20210225, end: 20210711
  3. CYCLOPHOSPHAMIDE [Suspect]
     Active Substance: CYCLOPHOSPHAMIDE
     Dosage: UP TO 5 DAYS IN EACH 21 DAY CYCLE
     Route: 042
     Dates: start: 20220121
  4. DOXORUBICIN HYDROCHLORIDE [Suspect]
     Active Substance: DOXORUBICIN HYDROCHLORIDE
     Indication: Neuroblastoma
     Dosage: UNK
     Route: 065
     Dates: start: 20210225, end: 20210711
  5. VENETOCLAX [Suspect]
     Active Substance: VENETOCLAX
     Indication: Refractory cancer
     Dosage: 120 MG, 1X/DAY
     Dates: start: 20220119, end: 20220119
  6. VENETOCLAX [Suspect]
     Active Substance: VENETOCLAX
     Dosage: 250 MG, 1X/DAY
     Dates: start: 20220120
  7. COTRIMOXAZOLE [Concomitant]
     Active Substance: SULFAMETHOXAZOLE\TRIMETHOPRIM
     Indication: Infection prophylaxis
     Dosage: BD ON MONDAY AND TUESDAY
     Route: 048
     Dates: start: 20220119
  8. MOVICOL [Concomitant]
     Active Substance: POLYETHYLENE GLYCOL 3350\POTASSIUM CHLORIDE\SODIUM BICARBONATE\SODIUM CHLORIDE
     Indication: Constipation
     Dosage: 1 SACHET
     Route: 048
     Dates: start: 20220203
  9. AMIKACIN [Concomitant]
     Active Substance: AMIKACIN
     Indication: Pyrexia
     Dosage: 20 MG/KG, 1X/DAY
     Route: 042
     Dates: start: 20220130
  10. AMIKACIN [Concomitant]
     Active Substance: AMIKACIN
     Indication: Febrile neutropenia
  11. CHOLECALCIFEROL [Concomitant]
     Active Substance: CHOLECALCIFEROL
     Indication: Nutritional supplementation
     Dosage: 3000 IU
     Route: 048
     Dates: start: 20220123
  12. CYCLIZINE [Concomitant]
     Active Substance: CYCLIZINE
     Indication: Prophylaxis of nausea and vomiting
     Route: 042
     Dates: start: 20220123
  13. LACTULOSE [Concomitant]
     Active Substance: LACTULOSE
     Indication: Constipation
     Route: 048
     Dates: start: 20220203
  14. LOPERAMIDE [Concomitant]
     Active Substance: LOPERAMIDE
     Indication: Diarrhoea
     Dosage: 1 MG, AS NEEDED
     Route: 048
     Dates: start: 20220119
  15. MESNA [Concomitant]
     Active Substance: MESNA
     Indication: Haematuria
     Dosage: 35 MG, 1X/DAY
     Route: 042
     Dates: start: 20220124
  16. ONDANSETRON [Concomitant]
     Active Substance: ONDANSETRON
     Indication: Prophylaxis of nausea and vomiting
     Dosage: TID, 1 AS REQUIRED
     Route: 048
     Dates: start: 20220119
  17. ONDANSETRON [Concomitant]
     Active Substance: ONDANSETRON
     Dosage: 3 MG, 3X/DAY
     Route: 042
     Dates: start: 20220123
  18. OXYCODONE [Concomitant]
     Active Substance: OXYCODONE
     Indication: Abdominal pain
     Dosage: 3 MG, 4X/DAY
     Route: 048
     Dates: start: 20220119, end: 20220210
  19. OXYCODONE [Concomitant]
     Active Substance: OXYCODONE
     Indication: Pain
     Dosage: 4 MG, 4X/DAY
     Route: 048
     Dates: start: 20220304
  20. OXYCODONE [Concomitant]
     Active Substance: OXYCODONE
     Indication: Arthralgia
     Dosage: 4 MG, 4X/DAY
     Route: 048
     Dates: start: 20220211, end: 20220303
  21. PIPERACILLIN [Concomitant]
     Active Substance: PIPERACILLIN
     Indication: Febrile neutropenia
     Dosage: 90 MG/KG, 4X/DAY
     Route: 042
     Dates: start: 20220130
  22. PREGABALIN [Concomitant]
     Active Substance: PREGABALIN
     Indication: Anxiety
     Dosage: 40 MG
     Route: 048
     Dates: start: 20220119
  23. PREGABALIN [Concomitant]
     Active Substance: PREGABALIN
     Indication: Neuralgia
  24. PREGABALIN [Concomitant]
     Active Substance: PREGABALIN
     Indication: Abdominal pain
  25. PREGABALIN [Concomitant]
     Active Substance: PREGABALIN
     Indication: Arthralgia
  26. SODIUM SELENITE [Concomitant]
     Active Substance: SODIUM SELENITE
     Indication: Selenium deficiency
     Dosage: 30 UG, 1X/DAY
     Dates: start: 20220119
  27. ZINC SULFATE [Concomitant]
     Active Substance: ZINC SULFATE
     Indication: Zinc deficiency
     Dosage: UNK MG, 1X/DAY
     Dates: start: 20220119

REACTIONS (1)
  - Pyrexia [Not Recovered/Not Resolved]

NARRATIVE: CASE EVENT DATE: 20220314
